FAERS Safety Report 6061997-X (Version None)
Quarter: 2009Q1

REPORT INFORMATION
  Report Type: 
  Country: None (occurrence: None)
  Receive Date: 20090202
  Receipt Date: 20090126
  Transmission Date: 20090719
  Serious: No
  Sender: FDA-Public Use
  Company Number: US-B.I. PHARMACEUTICALS,INC./RIDGEFIELD-2009-BP-00981BP

PATIENT
  Sex: Female

DRUGS (6)
  1. SPIRIVA [Suspect]
     Indication: CHRONIC OBSTRUCTIVE PULMONARY DISEASE
     Dosage: 18MCG
     Route: 055
     Dates: start: 20040401
  2. CRESTOR [Concomitant]
     Indication: BLOOD CHOLESTEROL INCREASED
     Route: 048
     Dates: start: 20080601
  3. SPIRONOLACTONE [Concomitant]
     Indication: FLUID RETENTION
     Dosage: 25MG
     Route: 048
     Dates: start: 20050101
  4. FUROSEMIDE [Concomitant]
     Indication: FLUID RETENTION
     Dosage: 40MG
     Route: 048
     Dates: start: 20050101
  5. POTASSIUM CHLORIDE [Concomitant]
     Indication: MUSCLE SPASMS
     Dosage: 30MEQ
     Route: 048
     Dates: start: 20050101
  6. NEURONTIN [Concomitant]
     Indication: MUSCLE SPASMS
     Dosage: 300MG
     Route: 048
     Dates: start: 20090101

REACTIONS (2)
  - DRUG INEFFECTIVE [None]
  - WHEEZING [None]
